APPROVED DRUG PRODUCT: ZOLOFT
Active Ingredient: SERTRALINE HYDROCHLORIDE
Strength: EQ 200MG BASE **Federal Register determination that product was not discontinued or withdrawn for safety or effectiveness reasons**
Dosage Form/Route: TABLET;ORAL
Application: N019839 | Product #004
Applicant: VIATRIS SPECIALTY LLC
Approved: Dec 30, 1991 | RLD: Yes | RS: No | Type: DISCN